FAERS Safety Report 5397448-8 (Version None)
Quarter: 2007Q3

REPORT INFORMATION
  Report Type: 
  Country: None (occurrence: None)
  Receive Date: 20070723
  Receipt Date: 20070723
  Transmission Date: 20080115
  Serious: Yes (Other)
  Sender: FDA-Public Use
  Company Number: None

PATIENT
  Age: 40 Year
  Sex: Female
  Weight: 79.3795 kg

DRUGS (3)
  1. EFFEXOR [Suspect]
     Indication: DEPRESSION
     Dosage: 150 QD ORAL
     Route: 048
     Dates: start: 20070201, end: 20070629
  2. EFFEXOR [Suspect]
     Dosage: 75 QD ORAL
     Route: 048
     Dates: start: 20070629, end: 20070630
  3. BUPROPION HCL [Concomitant]

REACTIONS (7)
  - ADVERSE DRUG REACTION [None]
  - DIARRHOEA [None]
  - DIZZINESS [None]
  - DRUG DOSE OMISSION [None]
  - DRUG WITHDRAWAL SYNDROME [None]
  - NAUSEA [None]
  - VOMITING [None]
